FAERS Safety Report 4593385-7 (Version None)
Quarter: 2005Q1

REPORT INFORMATION
  Report Type: 
  Country: None (occurrence: None)
  Receive Date: 20050224
  Receipt Date: 20040517
  Transmission Date: 20050727
  Serious: No
  Sender: FDA-Public Use
  Company Number: US-BRISTOL-MYERS SQUIBB COMPANY-12599254

PATIENT
  Age: 55 Year
  Sex: Female
  Weight: 66 kg

DRUGS (2)
  1. EXCEDRIN (MIGRAINE) [Suspect]
     Indication: ARTHRITIS
     Dosage: TAKEN EVERY 4-5 HOURS TOTALING 6-8 TABLETS A DAY.
     Route: 048
  2. EXCEDRIN (MIGRAINE) [Suspect]
     Indication: BURSITIS
     Dosage: TAKEN EVERY 4-5 HOURS TOTALING 6-8 TABLETS A DAY.
     Route: 048

REACTIONS (3)
  - DRUG INEFFECTIVE [None]
  - DYSPEPSIA [None]
  - MEDICATION ERROR [None]
